FAERS Safety Report 7335822-0 (Version None)
Quarter: 2011Q1

REPORT INFORMATION
  Report Type: 
  Country: None (occurrence: None)
  Receive Date: 20110307
  Receipt Date: 20110302
  Transmission Date: 20110831
  Serious: Yes (Death)
  Sender: FDA-Public Use
  Company Number: CA-MERCK-1012USA03457

PATIENT
  Age: 51 Year
  Sex: Male
  Weight: 88 kg

DRUGS (3)
  1. LIPITOR [Concomitant]
     Route: 048
  2. SINGULAIR [Suspect]
     Route: 048
  3. REACTINE [Concomitant]
     Route: 048

REACTIONS (1)
  - COMPLETED SUICIDE [None]
